FAERS Safety Report 7071212-6 (Version None)
Quarter: 2010Q4

REPORT INFORMATION
  Report Type: 
  Country: None (occurrence: None)
  Receive Date: 20101029
  Receipt Date: 20101026
  Transmission Date: 20110411
  Serious: Yes (Death, Life-Threatening, Hospitalization)
  Sender: FDA-Public Use
  Company Number: FR-SANOFI-AVENTIS-2010SA065345

PATIENT
  Age: 55 Year
  Sex: Male

DRUGS (5)
  1. TAXOTERE [Suspect]
     Route: 042
     Dates: start: 20100929, end: 20100929
  2. CISPLATIN [Suspect]
     Route: 042
     Dates: start: 20100929, end: 20100929
  3. FLUOROURACIL [Suspect]
     Route: 042
     Dates: start: 20100929, end: 20101004
  4. NEULASTA [Concomitant]
     Route: 042
     Dates: start: 20101005
  5. NEUPOGEN [Concomitant]
     Dates: start: 20101005

REACTIONS (5)
  - BONE MARROW FAILURE [None]
  - HYPOVOLAEMIC SHOCK [None]
  - MULTI-ORGAN FAILURE [None]
  - RENAL FAILURE [None]
  - SEPTIC SHOCK [None]
